FAERS Safety Report 11199398 (Version 3)
Quarter: 2015Q3

REPORT INFORMATION
  Report Type: Spontaneous
  Country: JP (occurrence: None)
  Receive Date: 20150616
  Receipt Date: 20150807
  Transmission Date: 20151125
  Serious: Yes (Hospitalization)
  Sender: FDA-Public Use
  Company Number: ABR_02248_2015

PATIENT
  Age: 49 Year
  Sex: Male

DRUGS (1)
  1. GLIADEL [Suspect]
     Active Substance: CARMUSTINE
     Indication: MALIGNANT GLIOMA
     Dosage: (61.6 MG 1X, 8 TOTAL INTRACEREBRAL)
     Dates: start: 20150526, end: 20150605

REACTIONS (4)
  - Hemiplegia [None]
  - Neoplasm [None]
  - Post procedural infection [None]
  - Brain oedema [None]

NARRATIVE: CASE EVENT DATE: 20150603
